FAERS Safety Report 22160807 (Version 1)
Quarter: 2023Q1

REPORT INFORMATION
  Report Type: Spontaneous
  Country: ES (occurrence: ES)
  Receive Date: 20230331
  Receipt Date: 20230331
  Transmission Date: 20230418
  Serious: Yes (Other)
  Sender: FDA-Public Use
  Company Number: ES-MYLANLABS-2023M1033828

PATIENT
  Age: 63 Year
  Sex: Female

DRUGS (7)
  1. LORATADINE [Suspect]
     Active Substance: LORATADINE
     Indication: Silicon granuloma
     Dosage: 10 MILLIGRAM, QD
     Route: 065
  2. PREDNISONE [Suspect]
     Active Substance: PREDNISONE
     Indication: Silicon granuloma
     Dosage: 15 MILLIGRAM, QD
     Route: 048
  3. ALLOPURINOL [Suspect]
     Active Substance: ALLOPURINOL
     Indication: Silicon granuloma
     Dosage: 200 MILLIGRAM, QD
     Route: 065
  4. TRIAMCINOLONE ACETONIDE [Suspect]
     Active Substance: TRIAMCINOLONE ACETONIDE
     Indication: Silicon granuloma
     Dosage: UNK; 40 MG/ML
     Route: 026
  5. HYDROXYCHLOROQUINE [Suspect]
     Active Substance: HYDROXYCHLOROQUINE
     Indication: Silicon granuloma
     Dosage: 200 MILLIGRAM, BID
     Route: 065
  6. DAPSONE [Suspect]
     Active Substance: DAPSONE
     Indication: Silicon granuloma
     Dosage: 100 MILLIGRAM, QD
     Route: 065
  7. DAPSONE [Suspect]
     Active Substance: DAPSONE
     Dosage: UNK; DAPSONE WAS TAPERED FOR 3 MONTHS
     Route: 065

REACTIONS (1)
  - Drug ineffective [Unknown]
